FAERS Safety Report 4713991-6 (Version None)
Quarter: 2005Q3

REPORT INFORMATION
  Report Type: 
  Country: None (occurrence: None)
  Receive Date: 20050714
  Receipt Date: 20050704
  Transmission Date: 20060218
  Serious: Yes (Hospitalization)
  Sender: FDA-Public Use
  Company Number: LU-BOEHRINGER INGELHEIM PHARMACEUTICALS, INC.-2005-BL-00226BL

PATIENT
  Age: 90 Year
  Sex: Male

DRUGS (5)
  1. SPIRIVA [Suspect]
     Route: 055
  2. SERETIDE [Concomitant]
     Route: 055
  3. LANOXIN [Concomitant]
     Route: 048
  4. SINTROM [Concomitant]
     Route: 048
  5. TORREM [Concomitant]
     Route: 048

REACTIONS (2)
  - DEPRESSED LEVEL OF CONSCIOUSNESS [None]
  - URINARY RETENTION [None]
